FAERS Safety Report 4801734-7 (Version None)
Quarter: 2005Q4

REPORT INFORMATION
  Report Type: 
  Country: None (occurrence: None)
  Receive Date: 20051013
  Receipt Date: 20051013
  Transmission Date: 20060501
  Serious: Yes (Hospitalization)
  Sender: FDA-Public Use
  Company Number: None

PATIENT
  Sex: Female
  Weight: 60.9 kg

DRUGS (6)
  1. PACLITAXEL [Suspect]
     Indication: BLADDER CANCER
     Dosage: 200MG/M2, D1, IV
     Route: 042
     Dates: start: 20050908
  2. CARBOPLATIN [Suspect]
     Indication: BLADDER CANCER
     Dosage: 320MG, D1, IV
     Route: 042
     Dates: start: 20050908
  3. GEMCITABINE [Suspect]
     Indication: BLADDER CANCER
     Dosage: 800MG/M2,D1,8,IV
     Route: 042
     Dates: start: 20050908
  4. NORVASC [Concomitant]
  5. LIPITOR [Concomitant]
  6. ASPIRIN [Concomitant]

REACTIONS (15)
  - ABASIA [None]
  - ANAEMIA [None]
  - BLOOD GLUCOSE INCREASED [None]
  - BLOOD SODIUM DECREASED [None]
  - CARDIOVASCULAR DISORDER [None]
  - DEEP VEIN THROMBOSIS [None]
  - HYPOAESTHESIA [None]
  - ILIAC ARTERY EMBOLISM [None]
  - ILIAC ARTERY THROMBOSIS [None]
  - ISCHAEMIA [None]
  - NEUTROPHIL COUNT DECREASED [None]
  - PLATELET COUNT DECREASED [None]
  - PROCEDURAL COMPLICATION [None]
  - PULSE ABSENT [None]
  - WHITE BLOOD CELL COUNT DECREASED [None]
